FAERS Safety Report 9818896 (Version 1)
Quarter: 2014Q1

REPORT INFORMATION
  Report Type: Report from Study
  Country: US (occurrence: US)
  Receive Date: 20140115
  Receipt Date: 20140115
  Transmission Date: 20141002
  Serious: Yes (Hospitalization)
  Sender: FDA-Public Use
  Company Number: PHEH2014US000808

PATIENT
  Sex: Female
  Weight: 93 kg

DRUGS (31)
  1. TOBI [Suspect]
     Indication: CYSTIC FIBROSIS
     Dosage: 1 DF, BID
     Route: 055
     Dates: start: 20130703
  2. JEVITY [Concomitant]
     Dosage: 30 DAYS 2
  3. CULTURELLE KIDS PACKETS [Concomitant]
     Dosage: TID, 30 DAYS 6
  4. PULMICORT [Concomitant]
     Dosage: UNK UKN, BID
  5. CLONIDINE HCL [Concomitant]
     Dosage: 0.1 MG, UNK
  6. DUONEB [Concomitant]
     Dosage: 0.5/2.5 MG/ 3 ML,30 DAYS BID
  7. CALMOSEPTINE [Concomitant]
     Dosage: 0.44/ 20.625 %, 30 DAYS, 6
  8. DUODERM HYDROACTIVE GEL [Concomitant]
     Dosage: UNK , 30 DAYS, 6
  9. METRONIDAZOLE [Concomitant]
     Dosage: UNK, 10 DAYS
  10. ATIVAN [Concomitant]
     Dosage: UNK , 30 DAYS, 11
  11. FLONASE [Concomitant]
     Dosage: 50 MG, UNK
  12. BACITRACIN [Concomitant]
     Dosage: 500 UNIT/GM
  13. GENTAMICIN [Concomitant]
     Dosage: UNK
  14. MELATONIN [Concomitant]
     Dosage: 3 MG, UNK
  15. VITAMIN D [Concomitant]
     Dosage: UNK
  16. KEPPRA [Concomitant]
     Dosage: 100 MG/ML
  17. BACLOFEN [Concomitant]
     Dosage: 20 MG, UNK
  18. IBUPROFEN [Concomitant]
     Dosage: UNK , 100, 30 DAYS , 11
  19. DIZEPAM [Concomitant]
     Dosage: UNK UKN, UNK
  20. PHENOBARBITAL SODIUM [Concomitant]
     Dosage: UNK
  21. VITAMIN B 6 [Concomitant]
     Dosage: 50 MG, UNK
  22. ROBINUL [Concomitant]
     Dosage: UNK , 1/5 MG/ML
  23. LANSOPRAZOLE [Concomitant]
     Dosage: 3 MG/ML
  24. CALCIUM CARBONATE [Concomitant]
     Dosage: 30 DAY 6
  25. SINGULAR [Concomitant]
     Dosage: 5 MG, TBQD 30 DAYS
  26. ALBUTEROL SULFATE [Concomitant]
     Dosage: 2.5 (UNIT UNSPECIFIED), Q4H
  27. ZYRTEC [Concomitant]
     Dosage: 2 TBQD, 30 DAYS
  28. TYLENOL [Concomitant]
     Dosage: 30 DAYS PRN
  29. MIRALAX [Concomitant]
     Dosage: 30 DAYS, 11
  30. DUODERM CGF [Concomitant]
     Dosage: UNK
  31. NUTREN 1.0 LIQUID [Concomitant]
     Dosage: UNK

REACTIONS (1)
  - Pneumonia [Unknown]
